FAERS Safety Report 24103216 (Version 1)
Quarter: 2024Q3

REPORT INFORMATION
  Report Type: Report from Study
  Country: IN (occurrence: IN)
  Receive Date: 20240717
  Receipt Date: 20240717
  Transmission Date: 20241016
  Serious: Yes (Death)
  Sender: ROCHE
  Company Number: IN-ROCHE-3573681

PATIENT
  Age: 34 Year
  Sex: Male
  Weight: 65.0 kg

DRUGS (1)
  1. TECENTRIQ [Suspect]
     Active Substance: ATEZOLIZUMAB
     Indication: Hepatocellular carcinoma
     Route: 041
     Dates: start: 20240205

REACTIONS (3)
  - Upper gastrointestinal haemorrhage [Unknown]
  - Pancreatic disorder [Unknown]
  - Death [Fatal]
